FAERS Safety Report 7709718-6 (Version None)
Quarter: 2011Q3

REPORT INFORMATION
  Report Type: 
  Country: None (occurrence: None)
  Receive Date: 20110825
  Receipt Date: 20110822
  Transmission Date: 20111222
  Serious: Yes (Other)
  Sender: FDA-Public Use
  Company Number: CN-GLAXOSMITHKLINE-B0741896A

PATIENT
  Age: 10 Year
  Sex: Male

DRUGS (1)
  1. LAMOTRIGINE [Suspect]
     Indication: EPILEPSY
     Dosage: 12.5MG PER DAY
     Route: 048

REACTIONS (8)
  - SCAR [None]
  - RASH PRURITIC [None]
  - DERMATITIS EXFOLIATIVE [None]
  - SWELLING [None]
  - LACERATION [None]
  - HEPATIC FUNCTION ABNORMAL [None]
  - HEPATIC LESION [None]
  - SKIN DISCOLOURATION [None]
